FAERS Safety Report 4448913-9 (Version None)
Quarter: 2004Q3

REPORT INFORMATION
  Report Type: 
  Country: None (occurrence: None)
  Receive Date: 20040909
  Receipt Date: 20040820
  Transmission Date: 20050211
  Serious: Yes (Life-Threatening, Hospitalization, Other)
  Sender: FDA-Public Use
  Company Number: US_0408105001

PATIENT
  Age: 58 Year
  Sex: Male
  Weight: 143 kg

DRUGS (8)
  1. HUMULIN 70/30 [Suspect]
     Indication: DIABETES MELLITUS
     Dosage: 116 U DAY
  2. COUMADIN [Concomitant]
  3. LEVOXYL [Concomitant]
  4. PRAVACHOL [Concomitant]
  5. METOPROLOL [Concomitant]
  6. LISINOPRIL [Concomitant]
  7. PROTONIX [Concomitant]
  8. FUROSEMIDE [Concomitant]

REACTIONS (6)
  - AMNESIA [None]
  - CARDIAC FAILURE [None]
  - DIZZINESS [None]
  - GASTRIC HAEMORRHAGE [None]
  - PHARMACEUTICAL PRODUCT COMPLAINT [None]
  - VISUAL DISTURBANCE [None]
